FAERS Safety Report 5758633-6 (Version None)
Quarter: 2008Q2

REPORT INFORMATION
  Report Type: 
  Country: None (occurrence: None)
  Receive Date: 20080604
  Receipt Date: 20080523
  Transmission Date: 20081010
  Serious: Yes (Death, Hospitalization)
  Sender: FDA-Public Use
  Company Number: JP-JNJFOC-20080505516

PATIENT
  Sex: Male

DRUGS (8)
  1. PREZISTA [Suspect]
     Route: 048
  2. PREZISTA [Suspect]
     Indication: HIV INFECTION
     Route: 048
  3. NORVIR [Concomitant]
     Indication: HIV INFECTION
     Route: 048
  4. DIFLUCAN [Concomitant]
     Indication: INFECTION PROPHYLAXIS
     Route: 065
  5. SULFAMETHOXAZOLE AND TRIMETHOPRIM [Concomitant]
     Indication: PROPHYLAXIS
     Route: 048
  6. PHELLOBERIN [Concomitant]
     Indication: DIARRHOEA
     Route: 048
  7. PRIMPERAN TAB [Concomitant]
     Indication: NAUSEA
     Route: 048
  8. LOPERAMIDE HCL [Concomitant]
     Indication: DIARRHOEA
     Route: 048

REACTIONS (4)
  - DIARRHOEA [None]
  - GAMMA-GLUTAMYLTRANSFERASE INCREASED [None]
  - INTERSTITIAL LUNG DISEASE [None]
  - NAUSEA [None]
